FAERS Safety Report 7335643-9 (Version None)
Quarter: 2011Q1

REPORT INFORMATION
  Report Type: 
  Country: None (occurrence: None)
  Receive Date: 20110307
  Receipt Date: 20110302
  Transmission Date: 20110831
  Serious: Yes (Death, Hospitalization)
  Sender: FDA-Public Use
  Company Number: A0886889A

PATIENT
  Age: 58 Year
  Sex: Male

DRUGS (1)
  1. ROSIGLITAZONE MALEATE [Suspect]
     Route: 048

REACTIONS (5)
  - RENAL FAILURE [None]
  - BLOOD PRESSURE ABNORMAL [None]
  - CATHETERISATION CARDIAC [None]
  - DEATH [None]
  - CARDIAC FAILURE CONGESTIVE [None]
